FAERS Safety Report 12381695 (Version 1)
Quarter: 2016Q2

REPORT INFORMATION
  Report Type: Spontaneous
  Country: US (occurrence: US)
  Receive Date: 20160518
  Receipt Date: 20160518
  Transmission Date: 20160815
  Serious: No
  Sender: FDA-Public Use
  Company Number: US-GLAXOSMITHKLINE-US2016061555

PATIENT
  Sex: Male

DRUGS (1)
  1. BACTROBAN [Suspect]
     Active Substance: MUPIROCIN\MUPIROCIN CALCIUM
     Indication: SINUSITIS
     Dosage: 2 DF, BID
     Route: 045
     Dates: start: 2006

REACTIONS (3)
  - Drug ineffective [Unknown]
  - Product use issue [Unknown]
  - Drug prescribing error [Unknown]
